FAERS Safety Report 7612037-X (Version None)
Quarter: 2011Q3

REPORT INFORMATION
  Report Type: 
  Country: None (occurrence: None)
  Receive Date: 20110715
  Receipt Date: 20110705
  Transmission Date: 20111222
  Serious: Yes (Hospitalization, Other)
  Sender: FDA-Public Use
  Company Number: US-ABBOTT-11P-163-0836815-00

PATIENT
  Sex: Female

DRUGS (1)
  1. HUMIRA [Suspect]
     Indication: PSORIATIC ARTHROPATHY
     Dates: start: 20100901, end: 20110531

REACTIONS (6)
  - CHEST PAIN [None]
  - DEVICE DISLOCATION [None]
  - PERIPHERAL EMBOLISM [None]
  - TIBIA FRACTURE [None]
  - ARTHRALGIA [None]
  - DYSPNOEA [None]
